FAERS Safety Report 14783212 (Version 1)
Quarter: 2018Q2

REPORT INFORMATION
  Report Type: Spontaneous
  Country: None (occurrence: FR)
  Receive Date: 20180420
  Receipt Date: 20180420
  Transmission Date: 20180711
  Serious: Yes (Other)
  Sender: FDA-Public Use
  Company Number: FR-MERCK KGAA-2046139

PATIENT
  Age: 30 Year
  Sex: Female

DRUGS (1)
  1. NOVOTHYROX [Suspect]
     Active Substance: LEVOTHYROXINE SODIUM
     Indication: HYPOTHYROIDISM
     Dates: start: 201704

REACTIONS (17)
  - Fluid retention [None]
  - Peripheral swelling [None]
  - Fatigue [None]
  - Psychiatric symptom [None]
  - Dysstasia [None]
  - Depression [None]
  - Social avoidant behaviour [None]
  - Palpitations [None]
  - Blood thyroid stimulating hormone increased [Recovered/Resolved]
  - Alopecia [None]
  - Insomnia [None]
  - Arrhythmia [None]
  - Irritability [None]
  - Anxiety [None]
  - Weight increased [None]
  - Muscle spasms [None]
  - Asthenia [None]

NARRATIVE: CASE EVENT DATE: 2017
